FAERS Safety Report 8844547 (Version 1)
Quarter: 2012Q4

REPORT INFORMATION
  Report Type: 
  Country: US (occurrence: US)
  Receive Date: 20121017
  Receipt Date: 20121017
  Transmission Date: 20130627
  Serious: No
  Sender: FDA-Public Use
  Company Number: US-BAUSCH-BL-2012-000537

PATIENT
  Age: 62 Year
  Sex: Male

DRUGS (2)
  1. LATANOPROST OPHTHALMIC SOLUTION 0.005% [Suspect]
     Indication: GLAUCOMA
     Dosage: 1 drop in eye(s); at bedtime
     Route: 047
     Dates: start: 2010
  2. PROPYLENE GLYCOL [Concomitant]

REACTIONS (3)
  - Foreign body sensation in eyes [Not Recovered/Not Resolved]
  - Eyelid margin crusting [Not Recovered/Not Resolved]
  - Eye discharge [Not Recovered/Not Resolved]
